FAERS Safety Report 15898388 (Version 1)
Quarter: 2019Q1

REPORT INFORMATION
  Report Type: Spontaneous
  Country: FR (occurrence: FR)
  Receive Date: 20190201
  Receipt Date: 20190201
  Transmission Date: 20190417
  Serious: Yes (Other)
  Sender: FDA-Public Use
  Company Number: FR-AUROBINDO-AUR-APL-2019-004162

PATIENT
  Age: 62 Year
  Sex: Female
  Weight: 64 kg

DRUGS (15)
  1. PANTOPRAZOLE SODIUM. [Suspect]
     Active Substance: PANTOPRAZOLE SODIUM
     Indication: WRONG PATIENT RECEIVED PRODUCT
     Dosage: ? 19 H
     Route: 048
     Dates: start: 20181123, end: 20181123
  2. TERCIAN [Concomitant]
     Active Substance: CYAMEMAZINE
     Indication: PRODUCT USED FOR UNKNOWN INDICATION
     Dosage: 1 DOSAGE FORM
     Route: 030
  3. LEPTICUR [Concomitant]
     Active Substance: TROPATEPINE HYDROCHLORIDE
     Indication: PRODUCT USED FOR UNKNOWN INDICATION
     Dosage: LE MATIN
     Route: 048
  4. RISPERIDONE. [Concomitant]
     Active Substance: RISPERIDONE
     Indication: PRODUCT USED FOR UNKNOWN INDICATION
     Dosage: 4 MILLIGRAM, ONCE A DAY
     Route: 048
  5. TERCIAN [Suspect]
     Active Substance: CYAMEMAZINE
     Indication: WRONG PATIENT RECEIVED PRODUCT
     Dosage: ? 19 H
     Route: 048
     Dates: start: 20181123, end: 20181123
  6. NEULEPTIL [Suspect]
     Active Substance: PERICIAZINE
     Indication: WRONG PATIENT RECEIVED PRODUCT
     Dosage: ? 19 H
     Route: 048
     Dates: start: 20181123, end: 20181123
  7. OROKEN [Suspect]
     Active Substance: CEFIXIME
     Indication: WRONG PATIENT RECEIVED PRODUCT
     Dosage: ? 19 H
     Route: 048
     Dates: start: 20181123, end: 20181123
  8. FORLAX [Suspect]
     Active Substance: POLYETHYLENE GLYCOL 4000
     Indication: WRONG PATIENT RECEIVED PRODUCT
     Dosage: 10 MILLIGRAM
     Route: 048
     Dates: start: 20181123, end: 20181123
  9. OLANZAPINE. [Suspect]
     Active Substance: OLANZAPINE
     Indication: WRONG PATIENT RECEIVED PRODUCT
     Dosage: ? 19 H
     Route: 048
     Dates: start: 20181123, end: 20181123
  10. TERCIAN [Concomitant]
     Active Substance: CYAMEMAZINE
     Dosage: UNK
  11. LEPTICUR [Concomitant]
     Active Substance: TROPATEPINE HYDROCHLORIDE
     Dosage: ? 19 H
     Route: 048
     Dates: start: 20181123, end: 20181123
  12. MOVICOL [Concomitant]
     Active Substance: POLYETHYLENE GLYCOL 3350\POTASSIUM CHLORIDE\SODIUM BICARBONATE\SODIUM CHLORIDE
     Indication: PRODUCT USED FOR UNKNOWN INDICATION
     Dosage: 2 DOSAGE FORM, ONCE A DAY
     Route: 048
  13. DEPAKOTE [Concomitant]
     Active Substance: DIVALPROEX SODIUM
     Dosage: LE SOIR
     Route: 048
  14. DIFFU K [Concomitant]
     Active Substance: POTASSIUM CHLORIDE
     Indication: PRODUCT USED FOR UNKNOWN INDICATION
     Route: 048
  15. DEPAKOTE [Concomitant]
     Active Substance: DIVALPROEX SODIUM
     Indication: PRODUCT USED FOR UNKNOWN INDICATION
     Dosage: LE MATIN
     Route: 048

REACTIONS (2)
  - Wrong patient received product [Recovered/Resolved]
  - Hypotension [Recovered/Resolved with Sequelae]

NARRATIVE: CASE EVENT DATE: 20181123
